FAERS Safety Report 19904819 (Version 1)
Quarter: 2021Q3

REPORT INFORMATION
  Report Type: Report from Study
  Country: US (occurrence: US)
  Receive Date: 20210930
  Receipt Date: 20210930
  Transmission Date: 20211014
  Serious: Yes (Other)
  Sender: FDA-Public Use
  Company Number: US-TAKEDA-2021TUS059606

PATIENT
  Sex: Male
  Weight: 63 kg

DRUGS (25)
  1. FLUTICASONE PROPIONATE. [Concomitant]
     Active Substance: FLUTICASONE PROPIONATE
  2. EPOGEN [Concomitant]
     Active Substance: ERYTHROPOIETIN
  3. FUROSEMIDE. [Concomitant]
     Active Substance: FUROSEMIDE
  4. VENOFER [Concomitant]
     Active Substance: IRON SUCROSE
  5. ACTEMRA [Concomitant]
     Active Substance: TOCILIZUMAB
  6. CALCIUM CITRATE WITH VITAMIN D3 [Concomitant]
     Active Substance: CALCIUM CITRATE\CHOLECALCIFEROL
  7. ACETAMINOPHEN. [Concomitant]
     Active Substance: ACETAMINOPHEN
  8. OYSTER SHELL CALCIUM [Concomitant]
     Active Substance: CALCIUM
  9. DIPHENHYDRAMINE. [Concomitant]
     Active Substance: DIPHENHYDRAMINE
  10. VITAMIN D3 [Concomitant]
     Active Substance: CHOLECALCIFEROL
  11. AZITHROMYCIN ANHYDROUS. [Concomitant]
     Active Substance: AZITHROMYCIN ANHYDROUS
  12. DRONABINOL. [Concomitant]
     Active Substance: DRONABINOL
  13. FOLIC ACID. [Concomitant]
     Active Substance: FOLIC ACID
  14. CUVITRU [Suspect]
     Active Substance: HUMAN IMMUNOGLOBULIN G
     Indication: IMMUNODEFICIENCY COMMON VARIABLE
     Dosage: 15 GRAM, 1/WEEK
     Route: 058
     Dates: start: 20200420
  15. EPINEPHRINE. [Concomitant]
     Active Substance: EPINEPHRINE
  16. MULTIVITAMIN WITH MINERALS [Concomitant]
     Active Substance: MINERALS\VITAMINS
  17. PROVENTIL HFA [Concomitant]
     Active Substance: ALBUTEROL SULFATE
  18. ADVAIR HFA [Concomitant]
     Active Substance: FLUTICASONE PROPIONATE\SALMETEROL XINAFOATE
  19. RANITIDINE. [Concomitant]
     Active Substance: RANITIDINE
  20. JAKAFI [Concomitant]
     Active Substance: RUXOLITINIB
  21. FERROUS SULFATE. [Concomitant]
     Active Substance: FERROUS SULFATE
  22. CUVITRU [Suspect]
     Active Substance: HUMAN IMMUNOGLOBULIN G
     Dosage: 15 GRAM, 1/WEEK
     Route: 058
     Dates: start: 20200420
  23. FERREX [Concomitant]
     Active Substance: FERRIC POLYSACCHARIDE COMPLEX
  24. LMX [Concomitant]
  25. CUVITRU [Suspect]
     Active Substance: HUMAN IMMUNOGLOBULIN G
     Dosage: 15 GRAM, 1/WEEK
     Route: 058
     Dates: start: 20200420

REACTIONS (1)
  - Upper limb fracture [Unknown]
